FAERS Safety Report 9460209 (Version 1)
Quarter: 2013Q3

REPORT INFORMATION
  Report Type: Report from Study
  Country: JP (occurrence: JP)
  Receive Date: 20130815
  Receipt Date: 20130815
  Transmission Date: 20140515
  Serious: Yes (Hospitalization)
  Sender: FDA-Public Use
  Company Number: JP-EISAI-201303443

PATIENT
  Age: 25 Year
  Sex: Male
  Weight: 78 kg

DRUGS (5)
  1. LUNESTA [Suspect]
     Indication: INSOMNIA RELATED TO ANOTHER MENTAL CONDITION
     Route: 048
     Dates: start: 20130420
  2. NELUROLEN [Concomitant]
     Indication: INSOMNIA RELATED TO ANOTHER MENTAL CONDITION
  3. INVEGA [Concomitant]
     Indication: SCHIZOPHRENIA
  4. LORAZEPAM [Concomitant]
     Indication: SCHIZOPHRENIA
     Dates: end: 20130529
  5. RIVOTRIL [Concomitant]
     Indication: SCHIZOPHRENIA

REACTIONS (1)
  - Schizophrenia [Recovered/Resolved]
